FAERS Safety Report 15509354 (Version 1)
Quarter: 2018Q4

REPORT INFORMATION
  Report Type: Spontaneous
  Country: AU (occurrence: AU)
  Receive Date: 20181016
  Receipt Date: 20181016
  Transmission Date: 20190205
  Serious: Yes (Hospitalization, Disabling)
  Sender: FDA-Public Use
  Company Number: None

PATIENT
  Age: 52 Year
  Sex: Female
  Weight: 76 kg

DRUGS (8)
  1. CIPROFLOXACIN. [Suspect]
     Active Substance: CIPROFLOXACIN
     Indication: DIARRHOEA INFECTIOUS
     Dosage: ?          QUANTITY:1 TABLET(S);?
     Route: 048
     Dates: start: 20140919, end: 20140925
  2. FISH OIL-EPA/DHA [Concomitant]
  3. ACETYL-L-CARNITINE [Concomitant]
  4. VITAMIN C [Concomitant]
     Active Substance: ASCORBIC ACID
  5. COLLAGEN [Concomitant]
     Active Substance: COLLAGEN
  6. CURCUMIN [Concomitant]
     Active Substance: CURCUMIN
  7. NAC [Concomitant]
  8. VITAMIN D [Concomitant]
     Active Substance: CHOLECALCIFEROL

REACTIONS (27)
  - Cold sweat [None]
  - Headache [None]
  - Bursitis [None]
  - Chest pain [None]
  - Paraesthesia [None]
  - Pain in extremity [None]
  - Inflammation [None]
  - Rash papular [None]
  - Visual impairment [None]
  - Rash erythematous [None]
  - Hyperhidrosis [None]
  - Neuropathy peripheral [None]
  - Tendonitis [None]
  - Pain [None]
  - Pyrexia [None]
  - Nausea [None]
  - Tachycardia [None]
  - Dyspnoea [None]
  - Palpitations [None]
  - Tinnitus [None]
  - Vertigo [None]
  - Dry eye [None]
  - Muscular weakness [None]
  - Petechiae [None]
  - Asthenia [None]
  - Feeling abnormal [None]
  - Muscle atrophy [None]

NARRATIVE: CASE EVENT DATE: 20140925
